FAERS Safety Report 8068651-3 (Version None)
Quarter: 2012Q1

REPORT INFORMATION
  Report Type: 
  Country: None (occurrence: None)
  Receive Date: 20120124
  Receipt Date: 20111116
  Transmission Date: 20120608
  Serious: No
  Sender: FDA-Public Use
  Company Number: US-AMGEN-USASP2011060402

PATIENT
  Age: 86 Year
  Sex: Female

DRUGS (9)
  1. PROLIA [Suspect]
     Indication: OSTEOPOROSIS POSTMENOPAUSAL
     Dosage: 60 MG, Q6MO
     Dates: start: 20110601
  2. VITAMIN C                          /00008001/ [Concomitant]
  3. SYNTHROID [Concomitant]
     Dosage: UNK
  4. CALCIUM PLUS VITAMIN D [Concomitant]
  5. ASPIRIN [Concomitant]
     Dosage: 81 MG, UNK
  6. GLUCOSAMINE + CHONDROITIN          /01430901/ [Concomitant]
     Dosage: UNK
  7. VITAMIN D [Concomitant]
     Dosage: UNK
  8. ENULOSE [Concomitant]
     Dosage: UNK
  9. ANV VITAMIN [Concomitant]
     Dosage: UNK

REACTIONS (5)
  - RASH [None]
  - MICTURITION DISORDER [None]
  - FATIGUE [None]
  - INSOMNIA [None]
  - MUSCLE SPASMS [None]
